FAERS Safety Report 7703298-7 (Version None)
Quarter: 2011Q3

REPORT INFORMATION
  Report Type: 
  Country: None (occurrence: None)
  Receive Date: 20110823
  Receipt Date: 20110810
  Transmission Date: 20111222
  Serious: Yes (Other)
  Sender: FDA-Public Use
  Company Number: US-ELI_LILLY_AND_COMPANY-US201108003762

PATIENT
  Sex: Female

DRUGS (7)
  1. LEVOTHYROXINE SODIUM [Concomitant]
     Indication: THYROID DISORDER
     Dosage: 175 UG, UNK
  2. CYMBALTA [Suspect]
     Indication: DIABETIC NEUROPATHY
     Dosage: 90 MG, QD
     Dates: start: 20050101
  3. VITAMIN D [Concomitant]
     Dosage: 400 IU, UNK
  4. OMEPRAZOLE [Concomitant]
     Indication: GASTRIC ULCER
     Dosage: 20 MG, UNK
  5. TRAZODONE HCL [Concomitant]
     Indication: INSOMNIA
     Dosage: 50 MG, UNK
  6. MULTI-VITAMIN [Concomitant]
     Dosage: 400 UNK, UNK
  7. LOVAZA [Concomitant]
     Dosage: 1000 MG, UNK

REACTIONS (10)
  - POSTOPERATIVE ADHESION [None]
  - NEPHROLITHIASIS [None]
  - RENAL FAILURE [None]
  - OVARIAN CYST [None]
  - BREAST LUMP REMOVAL [None]
  - GASTRIC BYPASS [None]
  - CHOLELITHIASIS [None]
  - GASTRIC ULCER [None]
  - BLOOD CALCIUM INCREASED [None]
  - RADIATION SKIN INJURY [None]
